FAERS Safety Report 5003242-X (Version None)
Quarter: 2006Q2

REPORT INFORMATION
  Report Type: 
  Country: None (occurrence: None)
  Receive Date: 20060516
  Receipt Date: 20060406
  Transmission Date: 20061013
  Serious: Yes (Death, Hospitalization)
  Sender: FDA-Public Use
  Company Number: US-BRISTOL-MYERS SQUIBB COMPANY-13339270

PATIENT
  Age: 38 Year
  Sex: Female

DRUGS (3)
  1. PARAPLATIN [Suspect]
     Indication: LUNG NEOPLASM MALIGNANT
     Route: 042
     Dates: start: 20060309, end: 20060309
  2. TAXOL [Suspect]
     Indication: LUNG NEOPLASM MALIGNANT
     Route: 042
     Dates: start: 20060309, end: 20060309
  3. RADIOTHERAPY [Concomitant]
     Indication: LUNG NEOPLASM MALIGNANT

REACTIONS (5)
  - DYSPNOEA [None]
  - INFECTION [None]
  - LUNG ABSCESS [None]
  - MALIGNANT NEOPLASM PROGRESSION [None]
  - PAIN [None]
